FAERS Safety Report 23343661 (Version 1)
Quarter: 2023Q4

REPORT INFORMATION
  Report Type: Spontaneous
  Country: US (occurrence: US)
  Receive Date: 20231227
  Receipt Date: 20231227
  Transmission Date: 20240110
  Serious: No
  Sender: FDA-Public Use
  Company Number: US-BAUSCH-BL-2023-019166

PATIENT
  Age: 14 Year
  Sex: Female

DRUGS (4)
  1. ELIDEL [Suspect]
     Active Substance: PIMECROLIMUS
     Indication: Psoriatic arthropathy
     Route: 061
  2. ELIDEL [Suspect]
     Active Substance: PIMECROLIMUS
     Indication: Psoriasis
  3. COSENTYX [Suspect]
     Active Substance: SECUKINUMAB
     Indication: Psoriasis
     Route: 061
  4. COSENTYX [Suspect]
     Active Substance: SECUKINUMAB
     Indication: Alopecia areata

REACTIONS (1)
  - Treatment failure [Unknown]
